FAERS Safety Report 20225598 (Version 1)
Quarter: 2021Q4

REPORT INFORMATION
  Report Type: Report from Study
  Country: CA (occurrence: CA)
  Receive Date: 20211224
  Receipt Date: 20211224
  Transmission Date: 20220303
  Serious: Yes (Hospitalization)
  Sender: FDA-Public Use
  Company Number: CA-ABBVIE-21K-028-4209828-00

PATIENT
  Sex: Male

DRUGS (4)
  1. HUMIRA [Suspect]
     Active Substance: ADALIMUMAB
     Indication: Ankylosing spondylitis
     Route: 058
     Dates: start: 20060406, end: 202104
  2. HUMIRA [Suspect]
     Active Substance: ADALIMUMAB
     Route: 058
     Dates: start: 202105
  3. COVID-19 VACCINE [Concomitant]
     Indication: COVID-19 immunisation
     Route: 030
     Dates: start: 202104, end: 202104
  4. COVID-19 VACCINE [Concomitant]
     Route: 030
     Dates: start: 202105, end: 202105

REACTIONS (5)
  - Gallbladder disorder [Unknown]
  - Back pain [Unknown]
  - Pain in extremity [Unknown]
  - Arthralgia [Unknown]
  - Finger deformity [Unknown]

NARRATIVE: CASE EVENT DATE: 20210101
